FAERS Safety Report 6764254 (Version 3)
Quarter: 2020Q3

REPORT INFORMATION
  Report Type: Report from Study
  Country: US (occurrence: US)
  Receive Date: 20080919
  Receipt Date: 20100309
  Transmission Date: 20201105
  Serious: Yes (Hospitalization)
  Sender: FDA-Public Use
  Company Number: US-JNJFOC-20080902470

PATIENT
  Age: 13 Year
  Sex: Male
  Weight: 34 kg

DRUGS (11)
  1. INFLIXIMAB [Suspect]
     Active Substance: INFLIXIMAB
     Route: 042
  2. MULTIVITAMINS [Concomitant]
     Active Substance: VITAMINS
  3. INFLIXIMAB [Suspect]
     Active Substance: INFLIXIMAB
     Indication: COLITIS ULCERATIVE
     Route: 042
  4. IRON [Concomitant]
     Active Substance: IRON
  5. TUMS [Concomitant]
     Active Substance: CALCIUM CARBONATE
  6. INFLIXIMAB [Suspect]
     Active Substance: INFLIXIMAB
     Route: 042
  7. CANASA [Concomitant]
     Active Substance: MESALAMINE
     Indication: COLITIS ULCERATIVE
  8. INFLIXIMAB [Suspect]
     Active Substance: INFLIXIMAB
     Route: 042
  9. ASACOL [Concomitant]
     Active Substance: MESALAMINE
  10. PREDNISONE. [Concomitant]
     Active Substance: PREDNISONE
  11. INFLIXIMAB [Suspect]
     Active Substance: INFLIXIMAB
     Route: 042

REACTIONS (1)
  - Pancreatitis [Recovered/Resolved]

NARRATIVE: CASE EVENT DATE: 20080907
